FAERS Safety Report 19929483 (Version 1)
Quarter: 2021Q4

REPORT INFORMATION
  Report Type: Spontaneous
  Country: US (occurrence: US)
  Receive Date: 20211007
  Receipt Date: 20211007
  Transmission Date: 20220303
  Serious: No
  Sender: FDA-Public Use
  Company Number: US-BIODELIVERY SCIENCES INTERNATIONAL-2021BDSI0419

PATIENT
  Age: 70 Year
  Sex: Female
  Weight: 56.75 kg

DRUGS (3)
  1. BUPRENORPHINE [Suspect]
     Active Substance: BUPRENORPHINE
     Indication: Product used for unknown indication
     Route: 002
     Dates: start: 20210820, end: 20210908
  2. BUPRENORPHINE [Suspect]
     Active Substance: BUPRENORPHINE
     Route: 002
     Dates: start: 20210909
  3. UNSPECIFIED INGREDIENT [Concomitant]
     Active Substance: UNSPECIFIED INGREDIENT
     Indication: Product used for unknown indication
     Dosage: 5 MG / 325 MG
     Route: 065

REACTIONS (7)
  - Wrong technique in product usage process [Unknown]
  - Product communication issue [Unknown]
  - Therapeutic response decreased [Unknown]
  - Product adhesion issue [Unknown]
  - Oral administration complication [Unknown]
  - Product physical consistency issue [Unknown]
  - Product solubility abnormal [Unknown]

NARRATIVE: CASE EVENT DATE: 20210101
